FAERS Safety Report 16187615 (Version 1)
Quarter: 2019Q2

REPORT INFORMATION
  Report Type: Spontaneous
  Country: FR (occurrence: FR)
  Receive Date: 20190412
  Receipt Date: 20190412
  Transmission Date: 20190711
  Serious: Yes (Hospitalization)
  Sender: FDA-Public Use
  Company Number: FR-BEH-2011029509

PATIENT
  Age: 83 Year
  Sex: Male
  Weight: 80 kg

DRUGS (20)
  1. TIMOPTOL 0.5% [Concomitant]
     Route: 065
  2. NEO-MERCAZOLE [Concomitant]
     Active Substance: CARBIMAZOLE
     Indication: HYPERTHYROIDISM
     Route: 065
     Dates: end: 201106
  3. PRIVIGEN [Suspect]
     Active Substance: HUMAN IMMUNOGLOBULIN G
     Dosage: UNK
     Route: 065
  4. TRUSOPT [Concomitant]
     Active Substance: DORZOLAMIDE HYDROCHLORIDE
     Dosage: UNK, QD
     Route: 065
  5. TIMOPTOL 0.5% [Concomitant]
     Dosage: UNK, QD
     Route: 065
  6. ADIXONE [Concomitant]
     Active Substance: FLUDROCORTISONE ACETATE
     Dosage: 100 ?G, QD
     Route: 048
     Dates: start: 20110623, end: 20110714
  7. CLAIRYG [Suspect]
     Active Substance: HUMAN IMMUNOGLOBULIN G
     Route: 042
     Dates: start: 20110629, end: 20110701
  8. ZELITREX [Concomitant]
     Active Substance: VALACYCLOVIR HYDROCHLORIDE
     Route: 048
     Dates: start: 20110620
  9. ENANTONE LP [Concomitant]
     Active Substance: LEUPROLIDE ACETATE
     Indication: PROSTATE CANCER METASTATIC
     Dosage: 11.25 MG, Q3MT
     Route: 065
     Dates: start: 201104
  10. TOBREX 0.3% [Concomitant]
     Dosage: UNK, BID
     Route: 065
  11. TOBREX 0.3% [Concomitant]
     Dosage: UNK, QD
     Route: 065
  12. PRIVIGEN [Suspect]
     Active Substance: HUMAN IMMUNOGLOBULIN G
     Dosage: UNK
     Route: 065
  13. INDOCOLLYRE [Concomitant]
     Active Substance: INDOMETHACIN
     Dosage: UNK, TID
     Route: 065
  14. TRUSOPT [Concomitant]
     Active Substance: DORZOLAMIDE HYDROCHLORIDE
     Route: 065
  15. FLUDROCORTISONE [Concomitant]
     Active Substance: FLUDROCORTISONE
     Indication: ORTHOSTATIC HYPOTENSION
  16. PRIVIGEN [Suspect]
     Active Substance: HUMAN IMMUNOGLOBULIN G
     Indication: ORTHOSTATIC HYPOTENSION
     Dosage: 33 G, QD
     Route: 041
     Dates: start: 20110706, end: 20110707
  17. PRIVIGEN [Suspect]
     Active Substance: HUMAN IMMUNOGLOBULIN G
     Dosage: UNK
     Route: 065
  18. REFRESH CELLUVISC [Concomitant]
     Active Substance: CARBOXYMETHYLCELLULOSE SODIUM
  19. INDOCOLLYRE [Concomitant]
     Active Substance: INDOMETHACIN
     Dosage: UNK, QD
     Route: 065
  20. GUTRON [Concomitant]
     Active Substance: MIDODRINE
     Indication: ORTHOSTATIC HYPOTENSION
     Dosage: 5 MG, QD
     Route: 048
     Dates: start: 20110616

REACTIONS (6)
  - Eczema [Not Recovered/Not Resolved]
  - Rash [Not Recovered/Not Resolved]
  - Pruritus [Not Recovered/Not Resolved]
  - Product use in unapproved indication [Not Recovered/Not Resolved]
  - Rash erythematous [Not Recovered/Not Resolved]
  - Skin exfoliation [Not Recovered/Not Resolved]

NARRATIVE: CASE EVENT DATE: 20110701
